FAERS Safety Report 7135435-X (Version None)
Quarter: 2010Q4

REPORT INFORMATION
  Report Type: 
  Country: None (occurrence: None)
  Receive Date: 20101119
  Receipt Date: 20101108
  Transmission Date: 20110411
  Serious: Yes (Hospitalization)
  Sender: FDA-Public Use
  Company Number: 020524

PATIENT
  Sex: Female
  Weight: 82 kg

DRUGS (5)
  1. LACOSAMIDE [Suspect]
     Indication: CONVULSION
     Dosage: 50 MG BID ORAL
     Route: 048
     Dates: start: 20100212, end: 20100410
  2. LACOSAMIDE [Suspect]
     Indication: EPILEPSY
     Dosage: 50 MG BID ORAL
     Route: 048
     Dates: start: 20100212, end: 20100410
  3. TOPAMAX [Concomitant]
  4. TEGRETOL [Concomitant]
  5. PEPCID AC [Concomitant]

REACTIONS (7)
  - APHASIA [None]
  - BLOOD GLUCOSE DECREASED [None]
  - CONVERSION DISORDER [None]
  - DIZZINESS [None]
  - HEADACHE [None]
  - MEMORY IMPAIRMENT [None]
  - PAIN [None]
